FAERS Safety Report 24801864 (Version 2)
Quarter: 2025Q1

REPORT INFORMATION
  Report Type: Spontaneous
  Country: US (occurrence: US)
  Receive Date: 20250102
  Receipt Date: 20250224
  Transmission Date: 20250409
  Serious: No
  Sender: BAUSCH AND LOMB
  Company Number: US-BAUSCHBL-2024BNL039514

PATIENT
  Age: 75 Year
  Sex: Female

DRUGS (1)
  1. LOTEMAX SM [Suspect]
     Active Substance: LOTEPREDNOL ETABONATE
     Indication: Corneal transplant
     Dosage: 1 GTT?QD
     Route: 047
     Dates: start: 2024

REACTIONS (6)
  - Ocular discomfort [Unknown]
  - Eye irritation [Unknown]
  - Eye discharge [Unknown]
  - Adverse reaction [Unknown]
  - Product use issue [Unknown]
  - Inappropriate schedule of product administration [Unknown]

NARRATIVE: CASE EVENT DATE: 20241223
